FAERS Safety Report 21781472 (Version 1)
Quarter: 2022Q4

REPORT INFORMATION
  Report Type: Report from Study
  Country: US (occurrence: US)
  Receive Date: 20221227
  Receipt Date: 20221227
  Transmission Date: 20230112
  Serious: Yes (Other)
  Sender: FDA-Public Use
  Company Number: US-SUN PHARMACEUTICAL INDUSTRIES LTD-2022R1-370651

PATIENT
  Age: 38 Year
  Sex: Male

DRUGS (1)
  1. SONIDEGIB [Suspect]
     Active Substance: SONIDEGIB
     Indication: Radiotherapy
     Dosage: UNK
     Route: 065

REACTIONS (6)
  - Therapy partial responder [Unknown]
  - Abdominal discomfort [Unknown]
  - Ageusia [Unknown]
  - Muscle spasms [Unknown]
  - Dysgeusia [Unknown]
  - Weight decreased [Unknown]
